FAERS Safety Report 9603252 (Version 1)
Quarter: 2013Q4

REPORT INFORMATION
  Report Type: Spontaneous
  Country: FR (occurrence: FR)
  Receive Date: 20131007
  Receipt Date: 20131007
  Transmission Date: 20140711
  Serious: Yes (Other)
  Sender: FDA-Public Use
  Company Number: PHHY2013FR111567

PATIENT
  Age: 74 Year
  Sex: Female

DRUGS (11)
  1. ACLASTA [Suspect]
     Dosage: 5 MG, UNK
     Route: 042
     Dates: start: 20130802
  2. AUGMENTIN [Suspect]
     Indication: URINARY TRACT INFECTION
     Dosage: 1 DF, QD (1G/125 MG)
     Dates: end: 20130803
  3. NOVORAPID [Concomitant]
     Dosage: 5 IU, DAILY
  4. NOVORAPID [Concomitant]
     Dosage: 10 IU, DAILY
  5. NOVORAPID [Concomitant]
     Dosage: 5 IU, DAILY
  6. LANTUS [Concomitant]
     Dosage: 1 MG, UNK
  7. GLUCOPHAGE [Concomitant]
     Dosage: 500 MG, TID
  8. LERCANIDIPINE [Concomitant]
     Dosage: 10 MG, QD
  9. PRAVASTATIN [Concomitant]
     Dosage: 20 MG, BID
  10. PYOSTACINE [Concomitant]
     Dosage: UNK UKN, UNK
  11. TAVANIC [Concomitant]
     Dosage: UNK UKN, UNK

REACTIONS (2)
  - Urticaria [Recovered/Resolved]
  - Hypotension [Recovered/Resolved]
